FAERS Safety Report 14353721 (Version 2)
Quarter: 2018Q1

REPORT INFORMATION
  Report Type: Spontaneous
  Country: GB (occurrence: GB)
  Receive Date: 20180105
  Receipt Date: 20180131
  Transmission Date: 20180509
  Serious: Yes (Hospitalization)
  Sender: FDA-Public Use
  Company Number: GB-ASTRAZENECA-2017SF33510

PATIENT
  Age: 82 Year
  Sex: Male

DRUGS (8)
  1. EPILIM [Interacting]
     Active Substance: VALPROATE SODIUM
     Route: 048
  2. COD-LIVER OIL [Concomitant]
     Active Substance: FISH OIL
  3. ELIQUIS [Interacting]
     Active Substance: APIXABAN
     Indication: CEREBROVASCULAR ACCIDENT
     Dosage: 5.0MG UNKNOWN
     Route: 048
  4. CRESTOR [Suspect]
     Active Substance: ROSUVASTATIN CALCIUM
     Dosage: 10.0MG UNKNOWN
     Route: 048
  5. EPILIM [Interacting]
     Active Substance: VALPROATE SODIUM
     Route: 048
  6. ADCAL [Concomitant]
     Active Substance: CALCIUM CARBONATE
     Route: 048
  7. EPILIM [Interacting]
     Active Substance: VALPROATE SODIUM
     Route: 048
  8. SITAGLIPTIN [Concomitant]
     Active Substance: SITAGLIPTIN
     Route: 048

REACTIONS (6)
  - Cerebrovascular accident [Unknown]
  - Renal disorder [Unknown]
  - Seizure [Unknown]
  - Fall [Unknown]
  - Somnolence [Unknown]
  - Drug interaction [Unknown]

NARRATIVE: CASE EVENT DATE: 201611
